FAERS Safety Report 6873739-6 (Version None)
Quarter: 2010Q3

REPORT INFORMATION
  Report Type: 
  Country: None (occurrence: None)
  Receive Date: 20100723
  Receipt Date: 20090303
  Transmission Date: 20110219
  Serious: No
  Sender: FDA-Public Use
  Company Number: US-PFIZER INC-2009178783

PATIENT
  Age: 46 Year
  Sex: Female
  Weight: 72.6 kg

DRUGS (4)
  1. CHANTIX [Suspect]
     Indication: SMOKING CESSATION THERAPY
     Dosage: UNK
  2. LIDODERM [Concomitant]
     Dosage: UNK
  3. TYLENOL [Concomitant]
     Dosage: UNK
  4. VITAMIN B [Concomitant]

REACTIONS (1)
  - ABDOMINAL DISTENSION [None]
